FAERS Safety Report 7134673 (Version 2)
Quarter: 2012Q4

REPORT INFORMATION
  Report Type: 
  Country: DE (occurrence: DE)
  Receive Date: 20090930
  Receipt Date: 20120831
  Transmission Date: 20130627
  Serious: Yes (Death, Life-Threatening, Hospitalization)
  Sender: FDA-Public Use
  Company Number: DE-RANBAXY-2009RR-28207

PATIENT
  Age: 76 Year
  Sex: Male
  Weight: 85 kg

DRUGS (10)
  1. ASS [Suspect]
     Indication: CORONARY ARTERY DISEASE
     Dosage: 100 mg, qd
     Route: 048
     Dates: start: 20090311
  2. IBUPROFEN [Suspect]
     Indication: PAIN
     Dosage: 800 mg, bid
     Route: 048
     Dates: start: 20090311, end: 20090624
  3. XIPAMIDE [Interacting]
     Indication: HYPERTENSION
     Dosage: 10 mg, qd
     Route: 048
     Dates: start: 20090311
  4. ACTRAPID INNOLET [Concomitant]
     Indication: TYPE 2 DIABETES MELLITUS
     Dosage: 40/36/30
     Route: 058
     Dates: start: 20090311
  5. BISOPROLOL [Concomitant]
     Indication: HYPERTENSION
     Dosage: 10 mg, qd
     Route: 048
     Dates: start: 20090311, end: 20090624
  6. DIGITOXIN [Concomitant]
     Indication: TACHYARRHYTHMIA
     Dosage: 0.07 mg, qd
     Route: 048
     Dates: start: 20090311, end: 20090625
  7. METFORMIN [Concomitant]
     Indication: TYPE 2 DIABETES MELLITUS
     Dosage: 1000 mg, bid
     Route: 048
     Dates: start: 20090311, end: 20090624
  8. OMEPRAZOLE [Concomitant]
     Indication: PROPHYLAXIS AGAINST GASTROINTESTINAL ULCER
     Dosage: 20 mg, qd
     Route: 048
     Dates: start: 20090311
  9. PROTAPHANE MC [Concomitant]
     Indication: TYPE 2 DIABETES MELLITUS
     Dosage: 40 IU, qd
     Route: 058
     Dates: start: 20090311
  10. BISOPROLOL [Concomitant]
     Indication: HYPERTENSION
     Dosage: 2.5 mg, bid
     Route: 048
     Dates: start: 20090702

REACTIONS (2)
  - Renal failure acute [Recovered/Resolved]
  - Drug interaction [Recovered/Resolved]
